FAERS Safety Report 9594614 (Version 3)
Quarter: 2014Q4

REPORT INFORMATION
  Report Type: Spontaneous
  Country: US (occurrence: None)
  Receive Date: 20131002
  Receipt Date: 20141031
  Transmission Date: 20150529
  Serious: Yes (Hospitalization)
  Sender: FDA-Public Use
  Company Number: 2013AP008292

PATIENT
  Age: 17 Year
  Sex: Male
  Weight: 67 kg

DRUGS (7)
  1. FERRIPROX [Suspect]
     Active Substance: DEFERIPRONE
     Indication: HAEMOCHROMATOSIS
     Route: 048
     Dates: start: 201308, end: 201309
  2. FOLIC ACID. [Concomitant]
     Active Substance: FOLIC ACID
  3. FERRIPROX [Suspect]
     Active Substance: DEFERIPRONE
     Indication: SICKLE CELL ANAEMIA
     Route: 048
     Dates: start: 201308, end: 201309
  4. ADVAIR HFA [Concomitant]
     Active Substance: FLUTICASONE PROPIONATE\SALMETEROL XINAFOATE
  5. EXJADE (DEFERASIROX) [Concomitant]
  6. SINGULAIR [Concomitant]
     Active Substance: MONTELUKAST SODIUM
  7. ALBUTEROL/00139501 [Concomitant]
     Indication: SICKLE CELL ANAEMIA

REACTIONS (3)
  - Blood potassium decreased [None]
  - Priapism [None]
  - Renal impairment [None]

NARRATIVE: CASE EVENT DATE: 201309
